FAERS Safety Report 6806495-8 (Version None)
Quarter: 2010Q2

REPORT INFORMATION
  Report Type: 
  Country: None (occurrence: None)
  Receive Date: 20100629
  Receipt Date: 20080310
  Transmission Date: 20101027
  Serious: No
  Sender: FDA-Public Use
  Company Number: US-PFIZER INC-2008023159

PATIENT
  Sex: Male

DRUGS (3)
  1. ZYVOX [Suspect]
     Indication: INFECTION
     Route: 042
     Dates: start: 20080101, end: 20080301
  2. ZYVOX [Suspect]
     Indication: INFECTION
     Route: 048
     Dates: start: 20080301
  3. ALL OTHER THERAPEUTIC PRODUCTS [Concomitant]
     Route: 042

REACTIONS (1)
  - DIARRHOEA [None]
